FAERS Safety Report 10069992 (Version 10)
Quarter: 2015Q1

REPORT INFORMATION
  Report Type: Spontaneous
  Country: BR (occurrence: BR)
  Receive Date: 20140410
  Receipt Date: 20150130
  Transmission Date: 20150720
  Serious: Yes (Hospitalization, Other)
  Sender: FDA-Public Use
  Company Number: BR-SA-2014SA040638

PATIENT
  Age: 73 Year
  Sex: Female

DRUGS (15)
  1. DULOXETINE HYDROCHLORIDE. [Suspect]
     Active Substance: DULOXETINE HYDROCHLORIDE
     Route: 065
  2. ALL OTHER THERAPEUTIC PRODUCTS [Concomitant]
     Active Substance: UNSPECIFIED INGREDIENT
  3. FLUOXETINE [Suspect]
     Active Substance: FLUOXETINE\FLUOXETINE HYDROCHLORIDE
     Route: 065
  4. ALL OTHER THERAPEUTIC PRODUCTS [Suspect]
     Active Substance: UNSPECIFIED INGREDIENT
     Route: 065
  5. CITALOPRAM [Concomitant]
     Active Substance: CITALOPRAM HYDROBROMIDE
     Indication: ANTIDEPRESSANT THERAPY
     Dosage: 7 MG
  6. AMARYL [Suspect]
     Active Substance: GLIMEPIRIDE
     Route: 065
     Dates: end: 2014
  7. METHOTREXATE [Suspect]
     Active Substance: METHOTREXATE
     Indication: PSORIASIS
     Route: 065
     Dates: end: 2013
  8. ALL OTHER THERAPEUTIC PRODUCTS [Concomitant]
     Active Substance: UNSPECIFIED INGREDIENT
     Indication: DEPRESSION
  9. TRADJENTA [Concomitant]
     Active Substance: LINAGLIPTIN
  10. NORTRIPTYLINE [Concomitant]
     Active Substance: NORTRIPTYLINE
  11. LANTUS [Suspect]
     Active Substance: INSULIN GLARGINE
     Indication: TYPE 2 DIABETES MELLITUS
     Route: 065
     Dates: end: 201409
  12. LANTUS [Suspect]
     Active Substance: INSULIN GLARGINE
     Indication: TYPE 2 DIABETES MELLITUS
     Route: 065
     Dates: start: 20141112
  13. PREDNISONE. [Suspect]
     Active Substance: PREDNISONE
     Route: 065
  14. CLIKSTAR [Concomitant]
     Active Substance: CLIKSTAR
  15. LOSARTAN POTASSIUM. [Concomitant]
     Active Substance: LOSARTAN POTASSIUM
     Dosage: IN AFTERNOON

REACTIONS (30)
  - Feeding disorder [Unknown]
  - Labyrinthitis [Recovered/Resolved]
  - Hypoglycaemia [Recovered/Resolved]
  - Platelet count decreased [Recovered/Resolved]
  - Melaena [Recovered/Resolved]
  - Feeding disorder [Recovered/Resolved]
  - Psoriasis [Recovering/Resolving]
  - Pain in extremity [Recovered/Resolved]
  - Somnolence [Recovered/Resolved]
  - Abnormal behaviour [Recovered/Resolved]
  - Malaise [Unknown]
  - Haemorrhage [Recovered/Resolved]
  - Erythema [Recovering/Resolving]
  - Depression [Recovering/Resolving]
  - Hearing impaired [Unknown]
  - Sleep disorder [Recovered/Resolved]
  - Rash [Recovering/Resolving]
  - Insomnia [Recovered/Resolved]
  - Confusional state [Recovered/Resolved]
  - Dizziness [Recovered/Resolved]
  - Dengue fever [Recovered/Resolved]
  - Hypotension [Recovered/Resolved]
  - Urinary tract infection [Recovered/Resolved]
  - Bone marrow disorder [Recovered/Resolved]
  - Leishmaniasis [Recovered/Resolved]
  - Pyrexia [Recovered/Resolved]
  - Wound [Recovered/Resolved]
  - Asthenia [Recovered/Resolved]
  - Abasia [Recovered/Resolved]
  - Deafness [Unknown]

NARRATIVE: CASE EVENT DATE: 2013
